FAERS Safety Report 4602248-X (Version None)
Quarter: 2005Q2

REPORT INFORMATION
  Report Type: 
  Country: None (occurrence: None)
  Receive Date: 20050215
  Receipt Date: 20050103
  Transmission Date: 20051028
  Serious: Yes (Other)
  Sender: FDA-Public Use
  Company Number: 382876

PATIENT
  Age: 56 Year
  Sex: Female

DRUGS (5)
  1. PEGASYS [Suspect]
     Indication: HEPATITIS C
     Dosage: 180 MCG  1 PER WEEK  SUBCUTANEOUS
     Route: 058
     Dates: start: 20040730
  2. COPEGUS [Suspect]
     Indication: HEPATITIS C
     Dosage: 1000 MG DAILY  2 PER DAY   ORAL
     Route: 048
     Dates: start: 20040730
  3. INFERGEN [Suspect]
     Indication: DRUG USE FOR UNKNOWN INDICATION
     Dosage: 15 MG DAILY  SUBCUTANEOUS
     Route: 058
  4. BUSPAR [Concomitant]
  5. ZOLOFT [Concomitant]

REACTIONS (9)
  - HYPERTENSION [None]
  - INFLUENZA LIKE ILLNESS [None]
  - MOOD ALTERED [None]
  - NO THERAPEUTIC RESPONSE [None]
  - PAIN [None]
  - PLATELET COUNT DECREASED [None]
  - RED BLOOD CELL COUNT DECREASED [None]
  - WEIGHT INCREASED [None]
  - WHITE BLOOD CELL COUNT DECREASED [None]
